FAERS Safety Report 13373781 (Version 1)
Quarter: 2017Q1

REPORT INFORMATION
  Report Type: Spontaneous
  Country: US (occurrence: US)
  Receive Date: 20170327
  Receipt Date: 20170327
  Transmission Date: 20170429
  Serious: Yes (Other)
  Sender: FDA-Public Use
  Company Number: None

PATIENT
  Age: 35 Year
  Sex: Female
  Weight: 63 kg

DRUGS (3)
  1. MAKENA [Suspect]
     Active Substance: HYDROXYPROGESTERONE CAPROATE
     Indication: PROPHYLAXIS
     Dosage: ?          QUANTITY:1 INJECTION(S);OTHER FREQUENCY:7DAYS;?
     Route: 030
     Dates: start: 20170120, end: 20170326
  2. ONE A DAY PRENATAL VITAMINS [Concomitant]
  3. MAKENA [Suspect]
     Active Substance: HYDROXYPROGESTERONE CAPROATE
     Indication: PREMATURE LABOUR
     Dosage: ?          QUANTITY:1 INJECTION(S);OTHER FREQUENCY:7DAYS;?
     Route: 030
     Dates: start: 20170120, end: 20170326

REACTIONS (5)
  - Gestational diabetes [None]
  - Arthralgia [None]
  - Mood swings [None]
  - Myalgia [None]
  - Headache [None]

NARRATIVE: CASE EVENT DATE: 20170325
